FAERS Safety Report 5166434-5 (Version None)
Quarter: 2006Q4

REPORT INFORMATION
  Report Type: 
  Country: None (occurrence: None)
  Receive Date: 20061207
  Receipt Date: 20061127
  Transmission Date: 20070319
  Serious: Yes (Hospitalization)
  Sender: FDA-Public Use
  Company Number: PHBS2006DE18373

PATIENT
  Sex: Male

DRUGS (1)
  1. CIBADREX [Suspect]
     Dosage: 1 TABLET/DAY
     Route: 048

REACTIONS (1)
  - COMA [None]
